FAERS Safety Report 5086569-5 (Version None)
Quarter: 2006Q3

REPORT INFORMATION
  Report Type: 
  Country: None (occurrence: None)
  Receive Date: 20060823
  Receipt Date: 20060821
  Transmission Date: 20061208
  Serious: Yes (Other)
  Sender: FDA-Public Use
  Company Number: US-GLAXOSMITHKLINE-A0617469A

PATIENT
  Age: 58 Year
  Sex: Female

DRUGS (1)
  1. FLONASE [Suspect]
     Indication: RHINITIS
     Route: 045

REACTIONS (2)
  - CATARACT [None]
  - NASAL DRYNESS [None]
